FAERS Safety Report 7346507-9 (Version None)
Quarter: 2011Q1

REPORT INFORMATION
  Report Type: 
  Country: None (occurrence: None)
  Receive Date: 20110311
  Receipt Date: 20110301
  Transmission Date: 20110831
  Serious: Yes (Hospitalization)
  Sender: FDA-Public Use
  Company Number: IN-EISAI INC-E7389-01148-CLI-IN

PATIENT
  Sex: Male
  Weight: 69 kg

DRUGS (9)
  1. E7389 (BOLD) [Suspect]
     Indication: NON-SMALL CELL LUNG CANCER
     Route: 041
     Dates: start: 20100824
  2. CYPROHEPTADINE HCL [Concomitant]
     Route: 048
     Dates: start: 20100824
  3. PROCHLORPERAZINE [Concomitant]
     Route: 048
     Dates: start: 20110125, end: 20110127
  4. DOMPERIDONE [Concomitant]
     Route: 048
     Dates: start: 20100824
  5. DEXAMETHASONE [Concomitant]
     Route: 048
     Dates: start: 20110125
  6. METFORMIN [Concomitant]
     Route: 048
     Dates: start: 20050101, end: 20110127
  7. CARBOPLATIN [Suspect]
     Indication: NON-SMALL CELL LUNG CANCER
     Route: 041
     Dates: start: 20100824
  8. PANTOPRAZOLE [Concomitant]
     Route: 048
     Dates: start: 20100824
  9. ONDANSETRON [Concomitant]
     Route: 048
     Dates: start: 20110125, end: 20110127

REACTIONS (3)
  - LEUKOPENIA [None]
  - THROMBOCYTOPENIA [None]
  - ANAEMIA [None]
